FAERS Safety Report 10146145 (Version 1)
Quarter: 2014Q2

REPORT INFORMATION
  Report Type: Report from Study
  Country: BR (occurrence: BR)
  Receive Date: 20140501
  Receipt Date: 20140501
  Transmission Date: 20141212
  Serious: Yes (Other)
  Sender: FDA-Public Use
  Company Number: PHHY2014BR051966

PATIENT
  Sex: Female
  Weight: 80 kg

DRUGS (3)
  1. EXELON PATCH [Suspect]
     Indication: DEMENTIA ALZHEIMER^S TYPE
     Dosage: 4.6 MG DAILY (9MG/5CM2)
     Route: 062
     Dates: start: 2003, end: 2003
  2. EXELON PATCH [Suspect]
     Dosage: 4.6 MG DAILY (9MG/5CM2)
     Route: 062
     Dates: start: 201312, end: 201403
  3. BROMOCRIPTINE [Suspect]
     Indication: HEADACHE
     Dosage: UNK

REACTIONS (15)
  - Pituitary enlargement [Recovered/Resolved]
  - Arrhythmia [Recovered/Resolved]
  - Dementia Alzheimer^s type [Recovered/Resolved]
  - Headache [Recovered/Resolved]
  - Hypersensitivity [Recovered/Resolved]
  - Pruritus [Recovered/Resolved]
  - Erythema [Recovered/Resolved]
  - Feeling cold [Recovered/Resolved]
  - Visual impairment [Recovered/Resolved]
  - Breast engorgement [Recovered/Resolved]
  - Dysstasia [Recovered/Resolved]
  - Somnolence [Recovered/Resolved]
  - Fall [Recovered/Resolved]
  - Anxiety [Recovered/Resolved]
  - Hypokinesia [Recovered/Resolved]
